FAERS Safety Report 20691036 (Version 5)
Quarter: 2022Q3

REPORT INFORMATION
  Report Type: Spontaneous
  Country: US (occurrence: US)
  Receive Date: 20220408
  Receipt Date: 20220930
  Transmission Date: 20221027
  Serious: Yes (Other)
  Sender: FDA-Public Use
  Company Number: US-BIOGENIDEC-2014BI065581

PATIENT
  Sex: Female

DRUGS (5)
  1. TECFIDERA [Suspect]
     Active Substance: DIMETHYL FUMARATE
     Indication: Multiple sclerosis
     Dosage: MAINTENANCE DOSE
     Route: 050
  2. TECFIDERA [Suspect]
     Active Substance: DIMETHYL FUMARATE
     Dosage: STARTING DOSE
     Route: 050
  3. TECFIDERA [Suspect]
     Active Substance: DIMETHYL FUMARATE
     Dosage: STARTING DOSE
     Route: 050
     Dates: start: 20140616
  4. TECFIDERA [Suspect]
     Active Substance: DIMETHYL FUMARATE
     Dosage: STARTING DOSE
     Route: 050
     Dates: start: 20140619
  5. TECFIDERA [Suspect]
     Active Substance: DIMETHYL FUMARATE
     Route: 050
     Dates: start: 20140713, end: 201412

REACTIONS (22)
  - Stevens-Johnson syndrome [Not Recovered/Not Resolved]
  - Prescribed underdose [Unknown]
  - Chest pain [Unknown]
  - Hepatic steatosis [Not Recovered/Not Resolved]
  - Haemorrhage [Unknown]
  - Feeling abnormal [Unknown]
  - Intentional underdose [Unknown]
  - Gastric disorder [Unknown]
  - Insomnia [Unknown]
  - Rocky mountain spotted fever [Unknown]
  - Nervous system disorder [Unknown]
  - Hypothyroidism [Unknown]
  - Liver disorder [Unknown]
  - Full blood count abnormal [Unknown]
  - White blood cell count decreased [Unknown]
  - Rash [Recovered/Resolved]
  - Dyspepsia [Unknown]
  - Abdominal pain upper [Unknown]
  - Pruritus [Recovered/Resolved]
  - Diarrhoea [Unknown]
  - Nausea [Unknown]
  - Flushing [Recovered/Resolved]

NARRATIVE: CASE EVENT DATE: 20140101
